FAERS Safety Report 16270926 (Version 4)
Quarter: 2019Q3

REPORT INFORMATION
  Report Type: Spontaneous
  Country: JP (occurrence: JP)
  Receive Date: 20190503
  Receipt Date: 20190821
  Transmission Date: 20191004
  Serious: Yes (Life-Threatening, Hospitalization, Other)
  Sender: FDA-Public Use
  Company Number: JP-GILEAD-2019-0404546

PATIENT
  Age: 56 Year
  Sex: Male
  Weight: 48.8 kg

DRUGS (21)
  1. RIFXIMA [Concomitant]
     Active Substance: RIFAXIMIN
     Dosage: 200 MG, TID
  2. POLAPREZINC [Concomitant]
     Active Substance: POLAPREZINC
  3. CALONAL [Concomitant]
     Active Substance: ACETAMINOPHEN
     Dosage: 200 MG, 2 DOSAGE FORM , WHEN FEVER
  4. ANTEBATE [Concomitant]
     Active Substance: BETAMETHASONE DIPROPIONATE
     Dosage: WITH OXAROL 25UG, 2 OR 3 TIMES PER DAY ON THE BODY
  5. NEXIUM [Concomitant]
     Active Substance: ESOMEPRAZOLE MAGNESIUM
     Dosage: 20 MG, QD
  6. OXAROL [Concomitant]
     Active Substance: MAXACALCITOL
     Dosage: 2 OR 3 TIMES PER DAY ON FACE
  7. URSODEOXYCHOLIC ACID [Concomitant]
     Active Substance: URSODIOL
     Dosage: 200 MG, TID
  8. MIYA-BM [Concomitant]
     Active Substance: CLOSTRIDIUM BUTYRICUM SPORES STRAIN M-55
     Dosage: 1 DOSAGE FORM, TID
  9. PROMAC [POLAPREZINC] [Concomitant]
     Active Substance: POLAPREZINC
     Dosage: 75 MG, BID
  10. FUROSEMIDE. [Concomitant]
     Active Substance: FUROSEMIDE
     Dosage: 40 MG, QD
  11. CARTIN [LEVOCARNITINE] [Concomitant]
     Dosage: 500 MG, TID
  12. LIXIANA OD [Concomitant]
     Active Substance: EDOXABAN TOSYLATE
     Dosage: 30 MG, QD
  13. EPCLUSA [Suspect]
     Active Substance: SOFOSBUVIR\VELPATASVIR
     Indication: HEPATIC CIRRHOSIS
     Dosage: 1 DOSAGE FORM, QD
     Route: 048
     Dates: start: 20190325, end: 20190425
  14. PURSENNID EX-LAX [SENNOSIDE A+B CALCIUM] [Concomitant]
     Dosage: 12 MG, QD
  15. SPIRONOLACTONE. [Concomitant]
     Active Substance: SPIRONOLACTONE
     Dosage: 50 MG, BID
  16. SAMSCA [Concomitant]
     Active Substance: TOLVAPTAN
     Dosage: 7.5 MG, QD
  17. AMINOLEBAN EN [Concomitant]
     Active Substance: UNSPECIFIED INGREDIENT
     Dosage: 50 G, TID
  18. SODIUM PICOSULFATE JG [Concomitant]
     Dosage: 5 OR 6 DROPS PER TIME, ADJUST AS APPROPRIATE
  19. KINDAVATE [Concomitant]
     Active Substance: CLOBETASONE BUTYRATE
     Dosage: 0.05% 2 OR 3 TIMES PER DAY ON THE FACE
  20. OXAROL [Concomitant]
     Active Substance: MAXACALCITOL
     Dosage: WITH ANTEBATE, 2 OR 3 TIMES PER DAY ON FACE
  21. BROTIZOLAM [Concomitant]
     Active Substance: BROTIZOLAM
     Dosage: 0.25 MG, QD

REACTIONS (2)
  - Oesophageal varices haemorrhage [Recovered/Resolved]
  - Off label use [Recovered/Resolved]

NARRATIVE: CASE EVENT DATE: 20190425
